FAERS Safety Report 10810960 (Version 1)
Quarter: 2015Q1

REPORT INFORMATION
  Report Type: Spontaneous
  Country: US (occurrence: None)
  Receive Date: 20150212
  Receipt Date: 20150212
  Transmission Date: 20150721
  Serious: Yes (Hospitalization)
  Sender: FDA-Public Use
  Company Number: None

PATIENT
  Age: 9 Year
  Sex: Male
  Weight: 22.68 kg

DRUGS (1)
  1. DIVALPROEX [Suspect]
     Active Substance: DIVALPROEX SODIUM
     Indication: SEIZURE
     Dosage: 3 PILLS DAILY
     Route: 048
     Dates: start: 20150203, end: 20150206

REACTIONS (3)
  - Seizure [None]
  - Product substitution issue [None]
  - Anticonvulsant drug level below therapeutic [None]

NARRATIVE: CASE EVENT DATE: 20150206
